FAERS Safety Report 24862275 (Version 1)
Quarter: 2025Q1

REPORT INFORMATION
  Report Type: Spontaneous
  Country: US (occurrence: US)
  Receive Date: 20250120
  Receipt Date: 20250120
  Transmission Date: 20250409
  Serious: Yes (Death, Hospitalization, Other)
  Sender: DR REDDYS
  Company Number: US-DRL-USA-USA/2025/01/000519

PATIENT
  Age: 62 Year
  Sex: Male

DRUGS (4)
  1. MELPHALAN [Suspect]
     Active Substance: MELPHALAN
     Indication: Bone marrow conditioning regimen
  2. CYCLOPHOSPHAMIDE [Suspect]
     Active Substance: CYCLOPHOSPHAMIDE
     Indication: Plasma cell myeloma
  3. BORTEZOMIB [Suspect]
     Active Substance: BORTEZOMIB
     Indication: Plasma cell myeloma
  4. DEXAMETHASONE [Suspect]
     Active Substance: DEXAMETHASONE
     Indication: Plasma cell myeloma

REACTIONS (9)
  - Multiple organ dysfunction syndrome [Fatal]
  - Drug-induced liver injury [Unknown]
  - Septic shock [Unknown]
  - Cryptococcosis [Unknown]
  - Encephalopathy [Unknown]
  - Gastrointestinal haemorrhage [Unknown]
  - Venoocclusive liver disease [Unknown]
  - Acute kidney injury [Unknown]
  - Product use in unapproved indication [Unknown]
